FAERS Safety Report 14282772 (Version 1)
Quarter: 2017Q4

REPORT INFORMATION
  Report Type: Spontaneous
  Country: BR (occurrence: BR)
  Receive Date: 20171213
  Receipt Date: 20171213
  Transmission Date: 20180321
  Serious: Yes (Other)
  Sender: FDA-Public Use
  Company Number: BR-GEHC-2017CSU004057

PATIENT

DRUGS (1)
  1. GADOLINIUM (UNSPECIFIED) [Suspect]
     Active Substance: GADOLINIUM
     Indication: FOETAL EXPOSURE DURING PREGNANCY
     Dosage: UNK UNK, SINGLE
     Route: 064

REACTIONS (2)
  - Premature delivery [Recovered/Resolved]
  - Foetal exposure during pregnancy [Recovered/Resolved]
